FAERS Safety Report 4539070-9 (Version None)
Quarter: 2004Q4

REPORT INFORMATION
  Report Type: 
  Country: None (occurrence: None)
  Receive Date: 20041222
  Receipt Date: 20041215
  Transmission Date: 20050328
  Serious: Yes (Other)
  Sender: FDA-Public Use
  Company Number: 2004-10-0252

PATIENT
  Age: 67 Year
  Sex: Female
  Weight: 72.5755 kg

DRUGS (8)
  1. CLARITIN-D [Suspect]
     Indication: MULTIPLE ALLERGIES
     Dosage: ONE QD ORAL
     Route: 048
     Dates: start: 20041002
  2. VERAPAMIL [Concomitant]
  3. SYNTHROID [Concomitant]
  4. DYAZIDE [Concomitant]
  5. LISINOPRIL [Concomitant]
  6. ARICEPT [Concomitant]
  7. FOSAMAX [Concomitant]
  8. CALCIUM GLUCONATE [Concomitant]

REACTIONS (1)
  - HALLUCINATION [None]
